FAERS Safety Report 4284228-X (Version None)
Quarter: 2004Q1

REPORT INFORMATION
  Report Type: 
  Country: None (occurrence: None)
  Receive Date: 20040203
  Receipt Date: 20040110
  Transmission Date: 20041129
  Serious: Yes (Hospitalization)
  Sender: FDA-Public Use
  Company Number: BR-ROCHE-355517

PATIENT
  Age: 56 Year
  Sex: Male
  Weight: 74 kg

DRUGS (7)
  1. RIBAVIRIN [Suspect]
     Route: 048
     Dates: start: 20030829, end: 20040109
  2. RIBAVIRIN [Suspect]
     Route: 048
     Dates: start: 20040123
  3. PEG-INTERFERON ALFA 2A (RO 25-8310) [Suspect]
     Route: 058
     Dates: start: 20030829, end: 20040109
  4. PEG-INTERFERON ALFA 2A (RO 25-8310) [Suspect]
     Route: 058
     Dates: start: 20040123
  5. AMANTADINE HCL [Suspect]
     Route: 048
     Dates: start: 20030829, end: 20040109
  6. AMANTADINE HCL [Suspect]
     Route: 048
     Dates: start: 20040123
  7. GLIPIZIDA [Concomitant]
     Dosage: DOSE WAS INCREASED TO 10MG FROM SEP 2003-ONGOING.
     Dates: start: 19950915

REACTIONS (3)
  - ANGINA UNSTABLE [None]
  - ELECTROCARDIOGRAM T WAVE INVERSION [None]
  - HAEMOGLOBIN DECREASED [None]
